FAERS Safety Report 9787520 (Version 2)
Quarter: 2013Q4

REPORT INFORMATION
  Report Type: Spontaneous
  Country: IT (occurrence: IT)
  Receive Date: 20131230
  Receipt Date: 20131230
  Transmission Date: 20140711
  Serious: Yes (Death, Other)
  Sender: FDA-Public Use
  Company Number: IT-ROCHE-653398

PATIENT
  Sex: 0

DRUGS (2)
  1. ENFUVIRTIDE [Suspect]
     Indication: HIV INFECTION
     Route: 065
  2. ENFUVIRTIDE [Suspect]
     Indication: HIV INFECTION
     Route: 065

REACTIONS (2)
  - Death [Fatal]
  - Treatment failure [Unknown]
